FAERS Safety Report 23481478 (Version 1)
Quarter: 2024Q1

REPORT INFORMATION
  Report Type: Spontaneous
  Country: NO (occurrence: NO)
  Receive Date: 20240205
  Receipt Date: 20240205
  Transmission Date: 20240410
  Serious: Yes (Other)
  Sender: FDA-Public Use
  Company Number: None

PATIENT
  Age: 45 Year
  Sex: Male
  Weight: 110 kg

DRUGS (3)
  1. REMERON [Suspect]
     Active Substance: MIRTAZAPINE
     Indication: Insomnia
     Dosage: N06AX11 - MIRTAZAPIN
     Route: 048
     Dates: start: 202311, end: 202311
  2. REMERON [Suspect]
     Active Substance: MIRTAZAPINE
     Indication: Depression
  3. VALTREX [Concomitant]
     Active Substance: VALACYCLOVIR HYDROCHLORIDE
     Dosage: J05AB11 - VALACIKLOVIR - ONGOING TREATMENT

REACTIONS (7)
  - Epilepsy [Recovered/Resolved]
  - Syncope [Recovered/Resolved]
  - Paraesthesia [Unknown]
  - Dizziness [Unknown]
  - Electric shock sensation [Unknown]
  - Blood pressure decreased [Recovered/Resolved]
  - Muscle spasms [Recovered/Resolved]

NARRATIVE: CASE EVENT DATE: 20231101
